FAERS Safety Report 17762011 (Version 2)
Quarter: 2020Q2

REPORT INFORMATION
  Report Type: Spontaneous
  Country: US (occurrence: US)
  Receive Date: 20200508
  Receipt Date: 20200618
  Transmission Date: 20200714
  Serious: Yes (Death, Other)
  Sender: FDA-Public Use
  Company Number: US-NAPPMUNDI-USA-2020-0152736

PATIENT
  Age: 68 Year
  Sex: Male

DRUGS (2)
  1. OXYCONTIN [Suspect]
     Active Substance: OXYCODONE HYDROCHLORIDE
     Indication: CANCER PAIN
     Dosage: 10 MG, TID
     Route: 048
     Dates: start: 2001
  2. OXYCODONE HYDROCHLORIDE (SIMILAR TO NDA 22-272) [Suspect]
     Active Substance: OXYCODONE HYDROCHLORIDE
     Indication: CANCER PAIN
     Dosage: 10 MG, TID
     Route: 048
     Dates: start: 2001

REACTIONS (12)
  - White blood cell count decreased [Unknown]
  - Abnormal behaviour [Unknown]
  - Pyrexia [Unknown]
  - Screaming [Unknown]
  - Cardiac arrest [Fatal]
  - Loss of consciousness [Unknown]
  - Fall [Recovered/Resolved]
  - Anal incontinence [Unknown]
  - Skull fracture [Unknown]
  - Hip fracture [Unknown]
  - Recurrent cancer [Unknown]
  - Red blood cell abnormality [Unknown]

NARRATIVE: CASE EVENT DATE: 20140305
